FAERS Safety Report 6181788-9 (Version None)
Quarter: 2009Q2

REPORT INFORMATION
  Report Type: 
  Country: None (occurrence: None)
  Receive Date: 20090506
  Receipt Date: 20090430
  Transmission Date: 20091009
  Serious: Yes (Life-Threatening, Hospitalization, Other)
  Sender: FDA-Public Use
  Company Number: BG-BAXTER-2009BH007827

PATIENT
  Age: 7 Year
  Sex: Male

DRUGS (4)
  1. OSMITROL INJECTION [Suspect]
     Indication: DEHYDRATION
     Route: 065
     Dates: start: 20090418, end: 20090421
  2. RINGER [Concomitant]
     Indication: DRUG USE FOR UNKNOWN INDICATION
     Route: 065
  3. FLAVAMED [Concomitant]
     Indication: DRUG USE FOR UNKNOWN INDICATION
     Route: 065
  4. NUROFEN [Concomitant]
     Indication: DRUG USE FOR UNKNOWN INDICATION
     Route: 065

REACTIONS (2)
  - PRODUCT CONTAMINATION MICROBIAL [None]
  - PYREXIA [None]
